FAERS Safety Report 5599192-0 (Version None)
Quarter: 2008Q1

REPORT INFORMATION
  Report Type: 
  Country: None (occurrence: None)
  Receive Date: 20080122
  Receipt Date: 20071114
  Transmission Date: 20080703
  Serious: Yes (Hospitalization)
  Sender: FDA-Public Use
  Company Number: US-MERCK-0711USA03300

PATIENT
  Age: 76 Year
  Sex: Female
  Weight: 86 kg

DRUGS (4)
  1. JANUVIA [Suspect]
     Indication: TYPE 2 DIABETES MELLITUS
     Route: 048
     Dates: start: 20070904, end: 20070905
  2. INSULIN [Concomitant]
     Route: 065
     Dates: end: 20070904
  3. STATIN (UNSPECIFIED) [Suspect]
     Route: 065
  4. COLCHICINE [Suspect]
     Route: 065

REACTIONS (3)
  - MYOPATHY [None]
  - RASH MACULO-PAPULAR [None]
  - SKIN EXFOLIATION [None]
